FAERS Safety Report 9711622 (Version 1)
Quarter: 2013Q4

REPORT INFORMATION
  Report Type: Spontaneous
  Country: US (occurrence: US)
  Receive Date: 20131126
  Receipt Date: 20131126
  Transmission Date: 20140711
  Serious: No
  Sender: FDA-Public Use
  Company Number: US-BRISTOL-MYERS SQUIBB COMPANY-18784587

PATIENT
  Age: 58 Year
  Sex: Female
  Weight: 81.63 kg

DRUGS (7)
  1. BYDUREON [Suspect]
     Indication: TYPE 2 DIABETES MELLITUS
     Dosage: INJECTIONS:2
     Dates: start: 2013
  2. ATORVASTATIN [Concomitant]
     Indication: BLOOD CHOLESTEROL
  3. HYDROCHLOROTHIAZIDE [Concomitant]
  4. SYNTHROID [Concomitant]
  5. BYSTOLIC [Concomitant]
     Indication: BLOOD PRESSURE
  6. VITAMIN D [Concomitant]
  7. METFORMIN [Concomitant]
     Indication: DIABETES MELLITUS

REACTIONS (3)
  - Injection site pruritus [Unknown]
  - Injection site nodule [Unknown]
  - Injection site erythema [Unknown]
